FAERS Safety Report 7723445-0 (Version None)
Quarter: 2011Q3

REPORT INFORMATION
  Report Type: 
  Country: None (occurrence: None)
  Receive Date: 20110901
  Receipt Date: 20110826
  Transmission Date: 20111222
  Serious: No
  Sender: FDA-Public Use
  Company Number: US-PFIZER INC-2011167347

PATIENT
  Sex: Female
  Weight: 77.1 kg

DRUGS (8)
  1. ESTRING [Suspect]
     Indication: VULVOVAGINAL DRYNESS
     Dosage: 2 MG, EVERY 3 MONTHS
     Route: 067
     Dates: start: 20101001, end: 20110101
  2. PROPOXYPHENE HCL AND ACETAMINOPHEN [Concomitant]
     Indication: HEADACHE
  3. OXYCODONE [Concomitant]
     Indication: PAIN
  4. GABAPENTIN [Concomitant]
     Dosage: 2400 MG, DAILY
  5. LEVOTHYROXINE [Concomitant]
     Dosage: 0.5 MG, UNK
  6. CLONAZEPAM [Concomitant]
     Dosage: 2 MG, UNK
  7. PROPOXYPHENE HCL AND ACETAMINOPHEN [Concomitant]
     Indication: PAIN
     Dosage: UNK
  8. SIMVASTATIN [Concomitant]
     Dosage: 20 MG, UNK

REACTIONS (5)
  - GENITAL DISCHARGE [None]
  - POOR QUALITY DRUG ADMINISTERED [None]
  - BLOOD GLUCOSE INCREASED [None]
  - HYPERHIDROSIS [None]
  - HOT FLUSH [None]
